FAERS Safety Report 16242713 (Version 1)
Quarter: 2019Q2

REPORT INFORMATION
  Report Type: Spontaneous
  Country: BG (occurrence: BG)
  Receive Date: 20190426
  Receipt Date: 20190426
  Transmission Date: 20190711
  Serious: Yes (Other)
  Sender: FDA-Public Use
  Company Number: BG-009507513-1904BGR010358

PATIENT
  Age: 74 Year
  Sex: Male

DRUGS (1)
  1. KEYTRUDA [Suspect]
     Active Substance: PEMBROLIZUMAB
     Indication: NON-SMALL CELL LUNG CANCER METASTATIC
     Dosage: 150 MG, EVERY 21 DAYS
     Dates: start: 201801

REACTIONS (1)
  - Tumour pseudoprogression [Recovering/Resolving]

NARRATIVE: CASE EVENT DATE: 201809
